FAERS Safety Report 7315286-3 (Version None)
Quarter: 2011Q1

REPORT INFORMATION
  Report Type: 
  Country: None (occurrence: None)
  Receive Date: 20110225
  Receipt Date: 20110215
  Transmission Date: 20110831
  Serious: Yes (Other)
  Sender: FDA-Public Use
  Company Number: PHHY2011DE13041

PATIENT
  Age: 62 Year
  Sex: Male

DRUGS (2)
  1. CYCLOSPORINE [Suspect]
     Indication: STEM CELL TRANSPLANT
     Dosage: 25 MG/DAY
  2. PREDNISOLONE ACETATE [Suspect]
     Indication: STEM CELL TRANSPLANT
     Dosage: 10-40 MG A DAY

REACTIONS (7)
  - CHRONIC GRAFT VERSUS HOST DISEASE [None]
  - CORNEAL GRAFT REJECTION [None]
  - BLEPHARITIS [None]
  - ULCERATIVE KERATITIS [None]
  - VISUAL ACUITY REDUCED [None]
  - KERATITIS [None]
  - ORAL CANDIDIASIS [None]
